FAERS Safety Report 7276042-8 (Version None)
Quarter: 2011Q1

REPORT INFORMATION
  Report Type: 
  Country: None (occurrence: None)
  Receive Date: 20110204
  Receipt Date: 20110128
  Transmission Date: 20110831
  Serious: Yes (Other)
  Sender: FDA-Public Use
  Company Number: B0697765A

PATIENT
  Sex: Male

DRUGS (5)
  1. BREXIDOL [Concomitant]
     Dosage: 20MG PER DAY
     Route: 048
  2. PARALGIN FORTE [Concomitant]
     Dosage: 1TAB FOUR TIMES PER DAY
     Route: 048
  3. SIMVASTATIN [Concomitant]
     Dosage: 20MG PER DAY
     Route: 048
  4. WELLBUTRIN RETARD [Suspect]
     Indication: DEPRESSION
     Dosage: 150MG PER DAY
     Route: 048
     Dates: start: 20101230
  5. METOPROLOL TARTRATE [Suspect]
     Indication: HYPERTENSION
     Dosage: 25MG PER DAY
     Route: 048
     Dates: start: 20050429

REACTIONS (1)
  - BLOOD PRESSURE INCREASED [None]
